FAERS Safety Report 5043905-3 (Version None)
Quarter: 2006Q2

REPORT INFORMATION
  Report Type: 
  Country: None (occurrence: None)
  Receive Date: 20060601
  Receipt Date: 20060220
  Transmission Date: 20061013
  Serious: No
  Sender: FDA-Public Use
  Company Number: US200602004085

PATIENT
  Sex: Female

DRUGS (5)
  1. CYMBALTA [Suspect]
     Dosage: 60 MG, 2/D, ORAL
     Route: 048
  2. ATIVAN [Concomitant]
  3. SEROQUEL [Concomitant]
  4. REMERON [Concomitant]
  5. LASIX [Concomitant]

REACTIONS (2)
  - FALL [None]
  - FEELING ABNORMAL [None]
